FAERS Safety Report 8542381-3 (Version None)
Quarter: 2012Q3

REPORT INFORMATION
  Report Type: 
  Country: None (occurrence: None)
  Receive Date: 20120726
  Receipt Date: 20111013
  Transmission Date: 20120928
  Serious: Yes (Other)
  Sender: FDA-Public Use
  Company Number: US-ASTRAZENECA-2011SE61672

PATIENT
  Age: 69 Year
  Sex: Female
  Weight: 93.4 kg

DRUGS (6)
  1. PAXIL [Concomitant]
  2. PRAVASTATIN [Concomitant]
  3. SEROQUEL [Suspect]
     Route: 048
  4. LITHIUM CARBONATE [Concomitant]
  5. LEVOTHYROXINE SODIUM [Concomitant]
  6. CLONAZEPAM [Concomitant]

REACTIONS (6)
  - INSOMNIA [None]
  - OEDEMA PERIPHERAL [None]
  - CHRONIC OBSTRUCTIVE PULMONARY DISEASE [None]
  - DRUG DOSE OMISSION [None]
  - CEREBROVASCULAR ACCIDENT [None]
  - SLEEP APNOEA SYNDROME [None]
